FAERS Safety Report 9275697 (Version 1)
Quarter: 2013Q2

REPORT INFORMATION
  Report Type: Spontaneous
  Country: US (occurrence: None)
  Receive Date: 20130502
  Receipt Date: 20130502
  Transmission Date: 20140414
  Serious: No
  Sender: FDA-Public Use
  Company Number: None

PATIENT
  Age: 60 Year
  Sex: Female
  Weight: 93.44 kg

DRUGS (1)
  1. PIPERACILLIN/TAZOBACTAM [Suspect]
     Dosage: CONTINUOUS
     Route: 042

REACTIONS (3)
  - Drug effect decreased [None]
  - Adverse reaction [None]
  - Product physical issue [None]
